FAERS Safety Report 7769705-9 (Version None)
Quarter: 2011Q3

REPORT INFORMATION
  Report Type: 
  Country: None (occurrence: None)
  Receive Date: 20110922
  Receipt Date: 20110617
  Transmission Date: 20111222
  Serious: No
  Sender: FDA-Public Use
  Company Number: US-ASTRAZENECA-2011SE36826

PATIENT
  Age: 14 Year
  Sex: Female

DRUGS (6)
  1. ARIPIPRAZOLE [Concomitant]
  2. QUETIAPINE [Suspect]
     Indication: EXTRAPYRAMIDAL DISORDER
     Route: 048
  3. ARIPIPRAZOLE [Concomitant]
     Dates: start: 20090101
  4. QUETIAPINE [Suspect]
     Route: 048
  5. QUETIAPINE [Suspect]
     Route: 048
  6. QUETIAPINE [Suspect]
     Dosage: DOSE REDUCED
     Route: 048

REACTIONS (3)
  - DIZZINESS [None]
  - MENSTRUATION IRREGULAR [None]
  - WEIGHT INCREASED [None]
